FAERS Safety Report 7318738 (Version 9)
Quarter: 2013Q2

REPORT INFORMATION
  Report Type: Report from Study
  Country: RU (occurrence: RU)
  Receive Date: 20100312
  Receipt Date: 20130626
  Transmission Date: 20140414
  Serious: Yes (Death, Life-Threatening, Hospitalization)
  Sender: FDA-Public Use
  Company Number: PHHO2010RU03694

PATIENT
  Age: 67 Year
  Sex: Male
  Weight: 79.9 kg

DRUGS (24)
  1. NITROGLYCERINE [Suspect]
  2. BLINDED ALISKIREN [Suspect]
     Indication: CARDIAC FAILURE
     Dosage: CODE NOT BROKEN
     Route: 048
     Dates: start: 20091210
  3. BLINDED ENALAPRIL [Suspect]
     Indication: CARDIAC FAILURE
     Dosage: CODE NOT BROKEN
     Route: 048
     Dates: start: 20091210
  4. BLINDED NO TREATMENT RECEIVED [Suspect]
     Indication: CARDIAC FAILURE
     Dosage: CODE NOT BROKEN
     Route: 048
     Dates: start: 20091210
  5. BLINDED ALISKIREN [Suspect]
     Dosage: CODE NOT BROKEN
     Route: 048
     Dates: start: 20100303, end: 20100306
  6. BLINDED ENALAPRIL [Suspect]
     Dosage: CODE NOT BROKEN
     Route: 048
     Dates: start: 20100303, end: 20100306
  7. BLINDED NO TREATMENT RECEIVED [Suspect]
     Dosage: CODE NOT BROKEN
     Route: 048
     Dates: start: 20100303, end: 20100306
  8. BLINDED ALISKIREN [Suspect]
     Dosage: NO TREATMENT
     Route: 048
     Dates: start: 20100307, end: 20100309
  9. BLINDED ENALAPRIL [Suspect]
     Dosage: NO TREATMENT
     Route: 048
     Dates: start: 20100307, end: 20100309
  10. BLINDED NO TREATMENT RECEIVED [Suspect]
     Dosage: NO TREATMENT
     Route: 048
     Dates: start: 20100307, end: 20100309
  11. BLINDED ALISKIREN [Suspect]
     Dosage: CODE NOT BROKEN
     Route: 048
     Dates: start: 20100310, end: 20130116
  12. BLINDED ENALAPRIL [Suspect]
     Dosage: CODE NOT BROKEN
     Route: 048
     Dates: start: 20100310, end: 20130116
  13. BLINDED NO TREATMENT RECEIVED [Suspect]
     Dosage: CODE NOT BROKEN
     Route: 048
     Dates: start: 20100310, end: 20130116
  14. BLINDED ALISKIREN [Suspect]
     Dosage: CODE NOT BROKEN
     Route: 048
     Dates: start: 20130130
  15. BLINDED ENALAPRIL [Suspect]
     Dosage: CODE NOT BROKEN
     Route: 048
     Dates: start: 20130130
  16. BLINDED NO TREATMENT RECEIVED [Suspect]
     Dosage: CODE NOT BROKEN
     Route: 048
     Dates: start: 20130130
  17. ALISKIREN [Suspect]
     Indication: CARDIAC FAILURE
     Dosage: UNK
     Route: 048
     Dates: start: 20091111
  18. COMPARATOR ENALAPRIL [Suspect]
     Indication: CARDIAC FAILURE
     Dosage: UNK
     Route: 048
     Dates: start: 20091008
  19. ISOSORBIDE DINITRATE [Suspect]
     Indication: ANGINA PECTORIS
  20. THROMBO ASS [Concomitant]
     Indication: MYOCARDIAL INFARCTION
     Dosage: 100 MG, QD
     Route: 048
     Dates: start: 20020814
  21. THROMBO ASS [Concomitant]
     Indication: ANGINA PECTORIS
  22. SIMVASTATIN [Concomitant]
     Indication: ANGINA PECTORIS
     Dosage: 20 MG, QD
     Route: 048
     Dates: start: 20090413
  23. METFORMIN [Concomitant]
     Indication: TYPE 2 DIABETES MELLITUS
     Dosage: 500 MG, QD
     Route: 048
     Dates: start: 20080320
  24. ATORVASTATIN [Concomitant]
     Indication: ANGINA PECTORIS
     Dosage: 20 MG, QD
     Route: 048
     Dates: start: 20111109

REACTIONS (17)
  - Myocardial ischaemia [Recovered/Resolved]
  - Cardiac failure chronic [Recovered/Resolved]
  - Circulatory collapse [Recovered/Resolved]
  - Cardiac disorder [Recovered/Resolved]
  - Right ventricular failure [Recovered/Resolved]
  - Angina unstable [Recovered/Resolved]
  - Disease progression [Recovered/Resolved]
  - Chest pain [Recovered/Resolved]
  - Cold sweat [Recovered/Resolved]
  - Vertigo [Recovered/Resolved]
  - Dizziness [Recovered/Resolved]
  - Loss of consciousness [Recovered/Resolved]
  - Hypotension [Recovered/Resolved]
  - Ventricular extrasystoles [Recovered/Resolved]
  - Pulmonary congestion [Recovered/Resolved]
  - Angina pectoris [Recovered/Resolved]
  - Hepatic cancer [Fatal]
